FAERS Safety Report 20769918 (Version 2)
Quarter: 2022Q2

REPORT INFORMATION
  Report Type: Report from Study
  Country: US (occurrence: US)
  Receive Date: 20220429
  Receipt Date: 20220520
  Transmission Date: 20220721
  Serious: Yes (Hospitalization, Other)
  Sender: FDA-Public Use
  Company Number: US-TAKEDA-2022TUS027464

PATIENT
  Age: 72 Year
  Sex: Female

DRUGS (27)
  1. TEDUGLUTIDE [Suspect]
     Active Substance: TEDUGLUTIDE
     Indication: Short-bowel syndrome
     Dosage: 1.70 MILLIGRAM, QD
     Route: 042
     Dates: start: 20200224, end: 20200626
  2. TEDUGLUTIDE [Suspect]
     Active Substance: TEDUGLUTIDE
     Indication: Short-bowel syndrome
     Dosage: 1.70 MILLIGRAM, QD
     Route: 042
     Dates: start: 20200224, end: 20200626
  3. TEDUGLUTIDE [Suspect]
     Active Substance: TEDUGLUTIDE
     Indication: Short-bowel syndrome
     Dosage: 1.70 MILLIGRAM, QD
     Route: 042
     Dates: start: 20200224, end: 20200626
  4. TEDUGLUTIDE [Suspect]
     Active Substance: TEDUGLUTIDE
     Indication: Short-bowel syndrome
     Dosage: 1.70 MILLIGRAM, QD
     Route: 042
     Dates: start: 20200224, end: 20200626
  5. TEDUGLUTIDE [Suspect]
     Active Substance: TEDUGLUTIDE
     Dosage: 1.70 MILLIGRAM, QD
     Route: 042
     Dates: start: 20200706, end: 20200727
  6. TEDUGLUTIDE [Suspect]
     Active Substance: TEDUGLUTIDE
     Dosage: 1.70 MILLIGRAM, QD
     Route: 042
     Dates: start: 20200706, end: 20200727
  7. TEDUGLUTIDE [Suspect]
     Active Substance: TEDUGLUTIDE
     Dosage: 1.70 MILLIGRAM, QD
     Route: 042
     Dates: start: 20200706, end: 20200727
  8. TEDUGLUTIDE [Suspect]
     Active Substance: TEDUGLUTIDE
     Dosage: 1.70 MILLIGRAM, QD
     Route: 042
     Dates: start: 20200706, end: 20200727
  9. TEDUGLUTIDE [Suspect]
     Active Substance: TEDUGLUTIDE
     Dosage: 1.70 MILLIGRAM, QD
     Route: 042
     Dates: start: 20200727, end: 20201214
  10. TEDUGLUTIDE [Suspect]
     Active Substance: TEDUGLUTIDE
     Dosage: 1.70 MILLIGRAM, QD
     Route: 042
     Dates: start: 20200727, end: 20201214
  11. TEDUGLUTIDE [Suspect]
     Active Substance: TEDUGLUTIDE
     Dosage: 1.70 MILLIGRAM, QD
     Route: 042
     Dates: start: 20200727, end: 20201214
  12. TEDUGLUTIDE [Suspect]
     Active Substance: TEDUGLUTIDE
     Dosage: 1.70 MILLIGRAM, QD
     Route: 042
     Dates: start: 20200727, end: 20201214
  13. TEDUGLUTIDE [Suspect]
     Active Substance: TEDUGLUTIDE
     Dosage: 1.70 MILLIGRAM, QD
     Route: 042
     Dates: start: 20201221, end: 20210412
  14. TEDUGLUTIDE [Suspect]
     Active Substance: TEDUGLUTIDE
     Dosage: 1.70 MILLIGRAM, QD
     Route: 042
     Dates: start: 20201221, end: 20210412
  15. TEDUGLUTIDE [Suspect]
     Active Substance: TEDUGLUTIDE
     Dosage: 1.70 MILLIGRAM, QD
     Route: 042
     Dates: start: 20201221, end: 20210412
  16. TEDUGLUTIDE [Suspect]
     Active Substance: TEDUGLUTIDE
     Dosage: 1.70 MILLIGRAM, QD
     Route: 042
     Dates: start: 20201221, end: 20210412
  17. TEDUGLUTIDE [Suspect]
     Active Substance: TEDUGLUTIDE
     Dosage: 1.70 MILLIGRAM, QD
     Route: 042
     Dates: start: 20210427, end: 20210505
  18. TEDUGLUTIDE [Suspect]
     Active Substance: TEDUGLUTIDE
     Dosage: 1.70 MILLIGRAM, QD
     Route: 042
     Dates: start: 20210427, end: 20210505
  19. TEDUGLUTIDE [Suspect]
     Active Substance: TEDUGLUTIDE
     Dosage: 1.70 MILLIGRAM, QD
     Route: 042
     Dates: start: 20210427, end: 20210505
  20. TEDUGLUTIDE [Suspect]
     Active Substance: TEDUGLUTIDE
     Dosage: 1.70 MILLIGRAM, QD
     Route: 042
     Dates: start: 20210427, end: 20210505
  21. TEDUGLUTIDE [Suspect]
     Active Substance: TEDUGLUTIDE
     Dosage: 1.70 MILLIGRAM, QD
     Route: 042
     Dates: start: 20210505
  22. TEDUGLUTIDE [Suspect]
     Active Substance: TEDUGLUTIDE
     Dosage: 1.70 MILLIGRAM, QD
     Route: 042
     Dates: start: 20210505
  23. TEDUGLUTIDE [Suspect]
     Active Substance: TEDUGLUTIDE
     Dosage: 1.70 MILLIGRAM, QD
     Route: 042
     Dates: start: 20210505
  24. TEDUGLUTIDE [Suspect]
     Active Substance: TEDUGLUTIDE
     Dosage: 1.70 MILLIGRAM, QD
     Route: 042
     Dates: start: 20210505
  25. CRANBERRY [Concomitant]
     Active Substance: CRANBERRY
     Indication: Prophylaxis
     Dosage: 200 MILLIGRAM, BID
     Route: 048
     Dates: start: 20200413
  26. FISH OIL [Concomitant]
     Active Substance: FISH OIL
     Indication: Prophylaxis
     Dosage: 300 MILLIGRAM, QD
     Route: 048
     Dates: start: 20201015
  27. FLUCONAZOLE [Concomitant]
     Active Substance: FLUCONAZOLE
     Indication: Candida infection
     Dosage: 200 MILLIGRAM, QD
     Route: 048
     Dates: start: 20211228, end: 20220112

REACTIONS (1)
  - Arthritis bacterial [Recovered/Resolved]

NARRATIVE: CASE EVENT DATE: 20220228
